FAERS Safety Report 4769067-5 (Version None)
Quarter: 2005Q3

REPORT INFORMATION
  Report Type: 
  Country: None (occurrence: None)
  Receive Date: 20050914
  Receipt Date: 20050901
  Transmission Date: 20060218
  Serious: Yes (Other)
  Sender: FDA-Public Use
  Company Number: 2005118382

PATIENT
  Age: 83 Year
  Sex: Female
  Weight: 58.0604 kg

DRUGS (11)
  1. POLYSPORIN OINTMENT [Suspect]
     Indication: SKIN LACERATION
     Dosage: QUARTER OF DIME SIZE
     Dates: start: 20050807
  2. THYROID TAB [Concomitant]
  3. FUROSEMIDE [Concomitant]
  4. DESLORATADINE (DESLORATADINE) [Concomitant]
  5. MONTELUKAST SODIUM (MONTELUKAST SODIUM) [Suspect]
  6. QUININE SULFATE [Concomitant]
  7. FLUTICASONE PROPIONATE (FUTICASONE PROPIONATE) [Concomitant]
  8. ASPIRIN [Concomitant]
  9. ACETAMINOPHEN [Concomitant]
  10. CHLORDIAPOXIDE CHLORDIAPOXIDE) [Concomitant]
  11. ZOLPIDEM TARTRATE [Concomitant]

REACTIONS (5)
  - BLISTER [None]
  - SKIN EXFOLIATION [None]
  - STAPHYLOCOCCAL INFECTION [None]
  - WOUND COMPLICATION [None]
  - WOUND SECRETION [None]
